FAERS Safety Report 15292090 (Version 1)
Quarter: 2018Q3

REPORT INFORMATION
  Report Type: Spontaneous
  Country: ES (occurrence: ES)
  Receive Date: 20180818
  Receipt Date: 20180818
  Transmission Date: 20181010
  Serious: Yes (Hospitalization, Other)
  Sender: FDA-Public Use
  Company Number: ES-AUROBINDO-AUR-APL-2018-041543

PATIENT
  Age: 51 Year
  Sex: Female

DRUGS (3)
  1. DEXKETOPROFEN [Suspect]
     Active Substance: DEXKETOPROFEN
     Indication: PAIN
     Dosage: 50 MILLIGRAM, 3 TIMES A DAY
     Route: 042
     Dates: start: 20150913, end: 20150925
  2. IBUPROFEN. [Suspect]
     Active Substance: IBUPROFEN
     Indication: SURGERY
     Dosage: UNK
     Route: 048
     Dates: start: 20150914, end: 20150923
  3. METAMIZOL                          /06276701/ [Suspect]
     Active Substance: METAMIZOLE
     Indication: PAIN
     Dosage: 2 GRAM, 3 TIMES A DAY
     Route: 042
     Dates: start: 20150909, end: 20150923

REACTIONS (1)
  - Drug reaction with eosinophilia and systemic symptoms [Recovered/Resolved]

NARRATIVE: CASE EVENT DATE: 20150914
